FAERS Safety Report 9389071 (Version 1)
Quarter: 2013Q3

REPORT INFORMATION
  Report Type: Spontaneous
  Country: DE (occurrence: DE)
  Receive Date: 20130708
  Receipt Date: 20130708
  Transmission Date: 20140515
  Serious: Yes (Other)
  Sender: FDA-Public Use
  Company Number: PHHY2013DE071574

PATIENT
  Age: 12 Year
  Sex: Female

DRUGS (1)
  1. RITALIN LA [Suspect]
     Dosage: 50 MG, DAILY
     Route: 048

REACTIONS (3)
  - Goitre [Unknown]
  - Hypothyroidism [Unknown]
  - Blood thyroid stimulating hormone increased [Unknown]
